FAERS Safety Report 15060509 (Version 1)
Quarter: 2018Q2

REPORT INFORMATION
  Report Type: Spontaneous
  Country: CA (occurrence: CA)
  Receive Date: 20180625
  Receipt Date: 20180625
  Transmission Date: 20180711
  Serious: Yes (Other)
  Sender: FDA-Public Use
  Company Number: CA-PFIZER INC-2018248313

PATIENT
  Age: 61 Year
  Sex: Male

DRUGS (4)
  1. HYDROCHLOROTHIAZIDE. [Suspect]
     Active Substance: HYDROCHLOROTHIAZIDE
     Dosage: 12.5 MG, UNK
     Dates: start: 2013
  2. AMLODIPINE BESILATE [Suspect]
     Active Substance: AMLODIPINE BESYLATE
     Dosage: 5 MG, DAILY
     Dates: start: 2013
  3. PREDNISONE. [Concomitant]
     Active Substance: PREDNISONE
     Dosage: 50 MG, 1X/DAY
     Dates: start: 20180609
  4. RAMIPRIL. [Concomitant]
     Active Substance: RAMIPRIL
     Dosage: 5 MG, 1X/DAY
     Dates: start: 2013

REACTIONS (2)
  - Skin ulcer [Recovering/Resolving]
  - Localised infection [Recovering/Resolving]
